FAERS Safety Report 8199611-X (Version None)
Quarter: 2012Q1

REPORT INFORMATION
  Report Type: 
  Country: None (occurrence: None)
  Receive Date: 20120310
  Receipt Date: 20120301
  Transmission Date: 20120608
  Serious: Yes (Other)
  Sender: FDA-Public Use
  Company Number: US-VERTEX PHARMACEUTICALS INC.-AE-2012-002153

PATIENT
  Sex: Male
  Weight: 81.72 kg

DRUGS (5)
  1. COPEGUS [Concomitant]
     Indication: HEPATITIS C
     Dates: start: 20120210, end: 20120220
  2. INHALER [Concomitant]
  3. PEGASYS [Concomitant]
     Indication: HEPATITIS C
     Dates: start: 20120210, end: 20120220
  4. LEVOTHYROXINE SODIUM [Concomitant]
  5. INCIVEK [Suspect]
     Indication: HEPATITIS C
     Route: 048
     Dates: start: 20120210, end: 20120220

REACTIONS (5)
  - RASH PRURITIC [None]
  - URTICARIA [None]
  - INSOMNIA [None]
  - RESTLESSNESS [None]
  - RESPIRATION ABNORMAL [None]
